FAERS Safety Report 7336094-3 (Version None)
Quarter: 2011Q1

REPORT INFORMATION
  Report Type: 
  Country: None (occurrence: None)
  Receive Date: 20110307
  Receipt Date: 20110224
  Transmission Date: 20110831
  Serious: Yes (Death, Other)
  Sender: FDA-Public Use
  Company Number: RU-GENENTECH-314457

PATIENT
  Age: 59 Year
  Sex: Male

DRUGS (2)
  1. MABTHERA [Suspect]
     Indication: LYMPHOMA
     Dosage: 200 MG, UNK
     Route: 042
     Dates: start: 20110125, end: 20110125
  2. MABTHERA [Suspect]
     Dosage: 500 MG, UNK
     Route: 042
     Dates: start: 20110126, end: 20110126

REACTIONS (3)
  - RESPIRATORY FAILURE [None]
  - LEUKOPENIA [None]
  - LUNG INFILTRATION [None]
